FAERS Safety Report 12177830 (Version 1)
Quarter: 2016Q1

REPORT INFORMATION
  Report Type: Spontaneous
  Country: US (occurrence: US)
  Receive Date: 20160315
  Receipt Date: 20160315
  Transmission Date: 20160526
  Serious: No
  Sender: FDA-Public Use
  Company Number: US-RECORDATI RARE DISEASES-US-R13005-15-00219

PATIENT
  Age: 54 Year
  Sex: Male

DRUGS (5)
  1. CHEMET [Suspect]
     Active Substance: SUCCIMER
     Indication: METAL POISONING
     Dosage: HALF OF PRESCRIPTION
     Route: 065
     Dates: start: 201509, end: 201511
  2. CHEMET [Suspect]
     Active Substance: SUCCIMER
     Indication: RADIATION INJURY
  3. CHEMET [Suspect]
     Active Substance: SUCCIMER
     Indication: METAL POISONING
  4. CHEMET [Suspect]
     Active Substance: SUCCIMER
     Indication: METAL POISONING
  5. TAGAMET [Concomitant]
     Active Substance: CIMETIDINE
     Indication: PRODUCT USED FOR UNKNOWN INDICATION
     Route: 065

REACTIONS (21)
  - Neck pain [Recovered/Resolved]
  - Toothache [Recovering/Resolving]
  - Weight increased [Recovering/Resolving]
  - Headache [Recovered/Resolved]
  - Chest pain [Recovered/Resolved]
  - Bone pain [Recovering/Resolving]
  - Arthralgia [Recovering/Resolving]
  - Pallor [Recovering/Resolving]
  - Unevaluable event [Recovering/Resolving]
  - Myalgia [Recovering/Resolving]
  - Constipation [Recovering/Resolving]
  - Neuralgia [Recovering/Resolving]
  - Alopecia [Recovering/Resolving]
  - T-lymphocyte count decreased [Recovering/Resolving]
  - Synovial disorder [Recovering/Resolving]
  - Gastrointestinal disorder [Recovering/Resolving]
  - Inflammation [Recovering/Resolving]
  - Condition aggravated [Recovering/Resolving]
  - Neuropathy peripheral [Recovering/Resolving]
  - Asthenia [Recovering/Resolving]
  - Off label use [Recovering/Resolving]

NARRATIVE: CASE EVENT DATE: 201511
